FAERS Safety Report 4965948-8 (Version None)
Quarter: 2006Q2

REPORT INFORMATION
  Report Type: 
  Country: None (occurrence: None)
  Receive Date: 20060403
  Receipt Date: 20060321
  Transmission Date: 20061013
  Serious: Yes (Other)
  Sender: FDA-Public Use
  Company Number: 2006040078

PATIENT
  Age: 40 Year
  Weight: 55.7 kg

DRUGS (5)
  1. DOXORUBICIN HCL [Suspect]
     Indication: BREAST CANCER
     Dosage: (90 MG) INTRAVENOUS
     Route: 042
     Dates: start: 20060222
  2. ONDANSETRON [Concomitant]
  3. DEXAMETHASONE (DEXXAMETHASONE) [Concomitant]
  4. LANSOPRAZOLE [Concomitant]
  5. CIPRALEX (ESCITALOPRAM) [Concomitant]

REACTIONS (1)
  - SWELLING FACE [None]
